FAERS Safety Report 5886963-6 (Version None)
Quarter: 2008Q3

REPORT INFORMATION
  Report Type: 
  Country: None (occurrence: None)
  Receive Date: 20080917
  Receipt Date: 20080903
  Transmission Date: 20090109
  Serious: No
  Sender: FDA-Public Use
  Company Number: US-B.I. PHARMACEUTICALS,INC./RIDGEFIELD-2008-BP-06874BP

PATIENT
  Age: 72 Year
  Sex: Female

DRUGS (1)
  1. MICARDIS HCT [Suspect]
     Indication: HYPERTENSION
     Route: 048
     Dates: start: 20080416, end: 20080430

REACTIONS (5)
  - APHONIA [None]
  - DRY MOUTH [None]
  - DYSGEUSIA [None]
  - TOOTHACHE [None]
  - VISUAL IMPAIRMENT [None]
